FAERS Safety Report 5753758-3 (Version None)
Quarter: 2008Q2

REPORT INFORMATION
  Report Type: 
  Country: None (occurrence: None)
  Receive Date: 20080527
  Receipt Date: 20080527
  Transmission Date: 20081010
  Serious: Yes (Hospitalization)
  Sender: FDA-Public Use
  Company Number: None

PATIENT
  Sex: Male
  Weight: 75.3 kg

DRUGS (3)
  1. CYCLOPHOSPHAMIDE [Suspect]
     Dosage: 1188 MG
  2. PENTOSTATIN [Suspect]
     Dosage: 8 MG
  3. RITUXIMAB (MOAB C2B8 ANTI CD20, CHIMERIC) [Suspect]
     Dosage: 743 MG

REACTIONS (5)
  - HAEMOGLOBIN ABNORMAL [None]
  - LYMPHOPENIA [None]
  - NEUTROPHIL COUNT ABNORMAL [None]
  - PLATELET COUNT ABNORMAL [None]
  - WHITE BLOOD CELL COUNT ABNORMAL [None]
